FAERS Safety Report 9379675 (Version 1)
Quarter: 2013Q2

REPORT INFORMATION
  Report Type: Spontaneous
  Country: FR (occurrence: None)
  Receive Date: 20130627
  Receipt Date: 20130627
  Transmission Date: 20140414
  Serious: Yes (Hospitalization)
  Sender: FDA-Public Use
  Company Number: 1693324

PATIENT
  Age: 68 Year
  Sex: Male

DRUGS (11)
  1. (CARBOPLATIN) [Suspect]
     Indication: SMALL CELL LUNG CANCER
     Route: 042
     Dates: start: 20120620, end: 20120820
  2. ADRIBLASTINE [Suspect]
     Route: 042
     Dates: start: 20120917, end: 20120917
  3. ENDOXAN /00021101/ [Suspect]
     Route: 042
     Dates: start: 20120917, end: 20120917
  4. ETOPOPHOS [Suspect]
     Route: 042
     Dates: start: 20120620, end: 20120917
  5. GLUCOPHAGE [Suspect]
     Indication: PRODUCT USED FOR UNKNOWN INDICATION
     Route: 048
  6. COVERSYL /00790702/ [Suspect]
     Indication: PRODUCT USED FOR UNKNOWN INDICATION
     Route: 048
  7. TEMERIT [Suspect]
     Indication: PRODUCT USED FOR UNKNOWN INDICATION
     Route: 048
  8. LERCAN [Suspect]
     Indication: PRODUCT USED FOR UNKNOWN INDICATION
     Route: 048
  9. TAHOR [Suspect]
     Indication: PRODUCT USED FOR UNKNOWN INDICATION
     Route: 048
  10. PLAVIX [Suspect]
     Indication: PRODUCT USED FOR UNKNOWN INDICATION
     Route: 048
  11. NOVONORM [Suspect]
     Indication: PRODUCT USED FOR UNKNOWN INDICATION
     Route: 048

REACTIONS (2)
  - Syncope [None]
  - Sinoatrial block [None]
